FAERS Safety Report 9055599 (Version 1)
Quarter: 2013Q1

REPORT INFORMATION
  Report Type: Other
  Country: GB (occurrence: GB)
  Receive Date: 20130206
  Receipt Date: 20130206
  Transmission Date: 20140127
  Serious: Yes (Disabling)
  Sender: FDA-Public Use
  Company Number: GB-WATSON-2013-01919

PATIENT
  Age: 35 Year
  Sex: Female

DRUGS (2)
  1. METRONIDAZOLE (UNKNOWN) [Suspect]
     Indication: TOOTH INFECTION
     Dosage: 400 MG, TID  THE PATIENT WAS TAKING METRONIDAZOLE FOR:
     Route: 048
     Dates: start: 20121222, end: 20121229
  2. LAMOTRIGINE (UNKNOWN) [Suspect]
     Indication: PRODUCT USED FOR UNKNOWN INDICATION
     Dosage: UNKNOWN
     Route: 065

REACTIONS (2)
  - Epilepsy [Recovered/Resolved]
  - Drug interaction [Unknown]
